FAERS Safety Report 7310738-4 (Version None)
Quarter: 2011Q1

REPORT INFORMATION
  Report Type: 
  Country: None (occurrence: None)
  Receive Date: 20110224
  Receipt Date: 20110209
  Transmission Date: 20110831
  Serious: Yes (Hospitalization)
  Sender: FDA-Public Use
  Company Number: PHHY2011SK05204

PATIENT
  Age: 47 Year
  Sex: Female
  Weight: 48 kg

DRUGS (8)
  1. CYCLOSPORINE [Concomitant]
     Dosage: UNK
     Dates: start: 19910101
  2. DICLOFENAC SODIUM [Suspect]
     Indication: RHEUMATOID ARTHRITIS
     Dosage: 75 MG, BID
     Dates: start: 19910101
  3. ACECLOFENAC [Concomitant]
     Dosage: 100 MG, DAILY
  4. PARACETAMOL [Concomitant]
     Indication: ARTHRALGIA
     Dosage: UNK
  5. METHOTREXATE [Concomitant]
     Dosage: UNK
     Dates: start: 19910101
  6. ETORICOXIB [Concomitant]
     Dosage: 90 MG, DAILY
  7. CORTICOSTEROID [Concomitant]
     Dosage: UNK
     Dates: start: 19910101
  8. OMEPRAZOLE [Concomitant]
     Indication: PROPHYLAXIS
     Dosage: UNK

REACTIONS (12)
  - OEDEMA MUCOSAL [None]
  - GASTROINTESTINAL DISORDER [None]
  - INFLAMMATION [None]
  - IRON DEFICIENCY ANAEMIA [None]
  - COLITIS [None]
  - C-REACTIVE PROTEIN INCREASED [None]
  - HAEMORRHAGE [None]
  - LARGE INTESTINAL HAEMORRHAGE [None]
  - OCCULT BLOOD [None]
  - LARGE INTESTINAL ULCER [None]
  - THROMBOCYTOSIS [None]
  - WEIGHT DECREASED [None]
